FAERS Safety Report 7248838-X (Version None)
Quarter: 2011Q1

REPORT INFORMATION
  Report Type: 
  Country: None (occurrence: None)
  Receive Date: 20110128
  Receipt Date: 20090528
  Transmission Date: 20110831
  Serious: Yes (Disabling, Other)
  Sender: FDA-Public Use
  Company Number: US-BAYER-200921366NA

PATIENT
  Sex: Male
  Weight: 78.8 kg

DRUGS (45)
  1. MAGNEVIST [Suspect]
     Indication: NUCLEAR MAGNETIC RESONANCE IMAGING
     Dosage: 16 ML, ONCE
     Route: 042
     Dates: start: 20040820, end: 20040820
  2. OPTIMARK [Suspect]
     Indication: NUCLEAR MAGNETIC RESONANCE IMAGING
  3. VENOFER [Concomitant]
     Dosage: UNK
     Dates: start: 20040601
  4. XANAX [Concomitant]
     Dosage: 0.5 MG, PRN
     Route: 048
     Dates: start: 20070906
  5. MAGNEVIST [Suspect]
     Dosage: 30 ML, ONCE
     Route: 042
     Dates: start: 20050211, end: 20050211
  6. MAGNEVIST [Suspect]
     Dosage: 15 ML, ONCE
     Route: 042
     Dates: start: 20060425, end: 20060425
  7. PROHANCE [Suspect]
     Indication: NUCLEAR MAGNETIC RESONANCE IMAGING
  8. TACROLIMUS [Concomitant]
     Indication: IMMUNOSUPPRESSANT DRUG THERAPY
     Dosage: 4 MG, BID
     Route: 048
     Dates: start: 20070906, end: 20090401
  9. AZATHIOPRINE [Concomitant]
     Indication: IMMUNOSUPPRESSANT DRUG THERAPY
     Dosage: 75 MG, QD
     Dates: start: 20080327, end: 20080508
  10. MYCELEX [Concomitant]
     Dosage: 10 MG, QID
     Dates: start: 20070906, end: 20071201
  11. COREG [Concomitant]
     Indication: HYPERTENSION
     Dosage: 12.5 MG, BID
     Dates: start: 20071019, end: 20080301
  12. HYTRIN [Concomitant]
     Indication: HYPERTENSION
     Dosage: 4 MG, BEDTIME
  13. ASPIRIN [Concomitant]
     Dosage: 325 MG, QD
     Route: 048
     Dates: start: 20070906
  14. MAGNEVIST [Suspect]
     Dosage: 14 ML, ONCE
     Route: 042
     Dates: start: 20050719, end: 20050719
  15. OMNISCAN [Suspect]
     Indication: NUCLEAR MAGNETIC RESONANCE IMAGING
  16. EPOGEN [Concomitant]
     Indication: ANAEMIA
     Dosage: 20000 U WITH DIALYSIS
     Dates: start: 20040206, end: 20060712
  17. CATAPRES [Concomitant]
     Indication: HYPERTENSION
     Dosage: UNK
     Route: 062
     Dates: start: 19980101, end: 20070101
  18. CITRACAL [Concomitant]
     Dosage: 950 MG, QD
     Route: 048
  19. NEURONTIN [Concomitant]
     Dosage: 400 MG, BID
  20. CELLCEPT [Concomitant]
     Indication: IMMUNOSUPPRESSANT DRUG THERAPY
     Dosage: 500 MG, BID
     Dates: start: 20070906, end: 20090401
  21. AVAPRO [Concomitant]
     Indication: HYPERTENSION
     Dosage: 300 MG, QD
     Route: 048
     Dates: start: 20051123
  22. PROTONIX [Concomitant]
     Dosage: 40 MG, QD
     Dates: start: 20070906
  23. SENSIPAR [Concomitant]
     Dosage: 60 MG, QD
     Route: 048
  24. HYDROXYZINE [Concomitant]
     Dosage: 50 MG, PRN
     Dates: start: 20080515
  25. LASIX [Concomitant]
     Dosage: 40 MG, QD
     Route: 048
  26. MULTIHANCE [Suspect]
     Indication: NUCLEAR MAGNETIC RESONANCE IMAGING
  27. RENAGEL [Concomitant]
     Dosage: 800 MG WITH MEALS
  28. MAGNEVIST [Suspect]
     Dosage: 15 ML, ONCE
     Route: 042
     Dates: start: 20041008, end: 20041008
  29. MAGNEVIST [Suspect]
     Dosage: 15 ML, ONCE
     Route: 042
     Dates: start: 20050222, end: 20050222
  30. MAGNEVIST [Suspect]
     Dosage: 14 ML, ONCE
     Route: 042
     Dates: start: 20060126, end: 20060126
  31. MAGNEVIST [Suspect]
     Dosage: 15 ML, ONCE
     Route: 042
     Dates: start: 20060706, end: 20060706
  32. NIFEDIPINE [Concomitant]
     Indication: HYPERTENSION
     Dosage: 60 MG, BID
     Dates: start: 19980101, end: 20070901
  33. LIPITOR [Concomitant]
     Indication: BLOOD CHOLESTEROL INCREASED
     Dosage: 10 MG, QD
     Dates: start: 20071121
  34. PAXIL [Concomitant]
     Dosage: 30 MG, QD
     Dates: start: 20080404
  35. MAGNEVIST [Suspect]
     Dosage: 13 ML, ONCE
     Route: 042
     Dates: start: 20070220, end: 20070220
  36. VICODIN [Concomitant]
     Indication: PAIN
     Dosage: EVERY 4-6 HOURS PRN
     Dates: start: 20070831
  37. BACTRIM [Concomitant]
     Dosage: 80 MG, QD
     Dates: start: 20070906, end: 20071201
  38. LISINOPRIL [Concomitant]
     Indication: HYPERTENSION
     Dosage: 20 MG, BID
     Route: 048
     Dates: start: 20070906
  39. VALSARTAN [Concomitant]
  40. MAGNEVIST [Suspect]
     Indication: NUCLEAR MAGNETIC RESONANCE IMAGING ABDOMINAL
     Dosage: 10 ML, ONCE
     Route: 042
     Dates: start: 20041124, end: 20041124
  41. MAGNEVIST [Suspect]
     Dosage: 15 ML, ONCE
     Route: 042
     Dates: start: 20051230, end: 20051230
  42. UNCODEABLE ^UNCLASSIFIABLE^ [Concomitant]
     Dosage: UNK
     Dates: start: 20040601
  43. NEPHROVITE [VIT C,VIT H,B5,B12,B9,B3,B6,B2,B1 HCL] [Concomitant]
     Dosage: UNK
     Dates: start: 20040801, end: 20070801
  44. VALCYTE [Concomitant]
     Dosage: 1800 MG, BID
     Dates: start: 20070906, end: 20071201
  45. IRBESARTAN [Concomitant]
     Indication: HYPERTENSION
     Dosage: 150 MG, BID
     Dates: start: 20040801

REACTIONS (21)
  - SKIN FIBROSIS [None]
  - SKIN INDURATION [None]
  - QUALITY OF LIFE DECREASED [None]
  - SKIN DISCOLOURATION [None]
  - GENERAL PHYSICAL HEALTH DETERIORATION [None]
  - DEFORMITY [None]
  - SKIN PLAQUE [None]
  - PRURITUS [None]
  - NEPHROGENIC SYSTEMIC FIBROSIS [None]
  - MOBILITY DECREASED [None]
  - EMOTIONAL DISTRESS [None]
  - ARTHRALGIA [None]
  - EXTREMITY CONTRACTURE [None]
  - PAIN [None]
  - SCAR [None]
  - ANXIETY [None]
  - SKIN HYPERTROPHY [None]
  - JOINT CONTRACTURE [None]
  - MUSCLE CONTRACTURE [None]
  - SKIN TIGHTNESS [None]
  - MYALGIA [None]
